FAERS Safety Report 11091684 (Version 2)
Quarter: 2015Q2

REPORT INFORMATION
  Report Type: Spontaneous
  Country: US (occurrence: US)
  Receive Date: 20150505
  Receipt Date: 20150513
  Transmission Date: 20150821
  Serious: Yes (Other)
  Sender: FDA-Public Use
  Company Number: US-GILEAD-2015-0151351

PATIENT
  Age: 64 Year
  Sex: Male

DRUGS (1)
  1. HARVONI [Suspect]
     Active Substance: LEDIPASVIR\SOFOSBUVIR
     Indication: HEPATITIS C
     Dosage: UNK
     Route: 065
     Dates: end: 20150404

REACTIONS (6)
  - Aphagia [Unknown]
  - Sinus disorder [Unknown]
  - Inner ear disorder [Unknown]
  - Headache [Unknown]
  - Skin cancer [Unknown]
  - Malaise [Unknown]

NARRATIVE: CASE EVENT DATE: 201503
